FAERS Safety Report 10720262 (Version 2)
Quarter: 2015Q1

REPORT INFORMATION
  Report Type: Spontaneous
  Country: CA (occurrence: CA)
  Receive Date: 20150119
  Receipt Date: 20150202
  Transmission Date: 20150721
  Serious: Yes (Death, Hospitalization)
  Sender: FDA-Public Use
  Company Number: CA-ROCHE-1523050

PATIENT
  Age: 96 Year
  Sex: Female

DRUGS (7)
  1. VALSARTAN. [Concomitant]
     Active Substance: VALSARTAN
  2. SIMVASTATIN. [Concomitant]
     Active Substance: SIMVASTATIN
  3. LUCENTIS [Suspect]
     Active Substance: RANIBIZUMAB
     Indication: AGE-RELATED MACULAR DEGENERATION
     Dosage: FREQUENCY: ONCE IN 2-3 MONTHS
     Route: 050
     Dates: start: 20130711, end: 20141119
  4. LUCENTIS [Suspect]
     Active Substance: RANIBIZUMAB
     Dosage: FREQUENCY: ONCE IN 2-3 MONTHS
     Route: 050
     Dates: start: 20141119
  5. ATENOLOL. [Concomitant]
     Active Substance: ATENOLOL
  6. ASA [Concomitant]
     Active Substance: ASPIRIN
  7. ADALAT [Concomitant]
     Active Substance: NIFEDIPINE

REACTIONS (1)
  - Cardio-respiratory arrest [Fatal]

NARRATIVE: CASE EVENT DATE: 20141207
